FAERS Safety Report 8448534-7 (Version None)
Quarter: 2012Q2

REPORT INFORMATION
  Report Type: 
  Country: None (occurrence: None)
  Receive Date: 20120619
  Receipt Date: 20120606
  Transmission Date: 20120825
  Serious: Yes (Death, Life-Threatening, Hospitalization, Disabling, Other)
  Sender: FDA-Public Use
  Company Number: US-MYLANLABS-2009AC000431

PATIENT
  Age: 69 Year
  Sex: Male
  Weight: 77.11 kg

DRUGS (40)
  1. COUMADIN [Concomitant]
     Dosage: OR 5 MG
  2. GINGKO BILOBA [Concomitant]
  3. LOPID [Concomitant]
  4. SAW PALMETTO [Concomitant]
  5. ZOLOFT [Concomitant]
  6. GLUCOSAMINE AND CHONDROITIN [Concomitant]
  7. PLAVIX [Concomitant]
  8. ARICEPT [Concomitant]
  9. TRICOR [Concomitant]
  10. XANAX [Concomitant]
     Dosage: IN EVENINGS FOR NERVES
  11. COZAAR [Concomitant]
  12. KEFLEX [Concomitant]
  13. ACIPHEX [Concomitant]
  14. ZETIA [Concomitant]
  15. WELLBUTRIN [Concomitant]
  16. GALANTAMINE HYDROBROMIDE [Concomitant]
  17. LEXAPRO [Concomitant]
  18. PROCARDIA /00340701/ [Concomitant]
     Dosage: XL
  19. MULTI-VITAMIN [Concomitant]
  20. ASPIRIN [Concomitant]
  21. INFLUENZA INJECTION [Concomitant]
  22. DIGOXIN [Suspect]
     Indication: ATRIAL FIBRILLATION
     Route: 048
     Dates: start: 20050921, end: 20080308
  23. NAMENDA [Concomitant]
  24. PACERONE [Concomitant]
  25. MEGACE [Concomitant]
  26. PROZAC [Concomitant]
  27. REMERON [Concomitant]
  28. AMIODARONE HYDROCHLORIDE [Concomitant]
  29. CARTIA XT [Concomitant]
  30. CORAL CALCIUM [Concomitant]
  31. PREDNISONE [Concomitant]
  32. DETROL LA [Concomitant]
  33. PROCARDIA /00340701/ [Concomitant]
  34. MEGA B COMPLEX [Concomitant]
  35. VITAMIN E [Concomitant]
  36. ACIDOPHILUS [Concomitant]
  37. ESTER C /00008001/ [Concomitant]
  38. EFFEXOR [Concomitant]
  39. DOXYCYCLINE [Concomitant]
  40. MIRAPEX [Concomitant]

REACTIONS (103)
  - ECONOMIC PROBLEM [None]
  - MYOSITIS [None]
  - HYDROCEPHALUS [None]
  - SYNCOPE [None]
  - SENILE DEMENTIA [None]
  - TREMOR [None]
  - COUGH [None]
  - SINUS HEADACHE [None]
  - STAPHYLOCOCCAL INFECTION [None]
  - VIBRATION TEST ABNORMAL [None]
  - HYPERTONIC BLADDER [None]
  - CERVICAL SPINAL STENOSIS [None]
  - REFLEXES ABNORMAL [None]
  - HOSPITALISATION [None]
  - ILL-DEFINED DISORDER [None]
  - NAUSEA [None]
  - MUSCULAR DYSTROPHY [None]
  - VENTRICULAR FIBRILLATION [None]
  - ATRIOVENTRICULAR BLOCK [None]
  - DEPRESSED MOOD [None]
  - CAROTID ARTERY DISEASE [None]
  - GENERAL PHYSICAL HEALTH DETERIORATION [None]
  - CONFUSIONAL STATE [None]
  - RENAL DISORDER [None]
  - NECK PAIN [None]
  - MUSCULAR WEAKNESS [None]
  - SPINAL DEFORMITY [None]
  - LUMBAR PUNCTURE [None]
  - OSTEOPENIA [None]
  - TRANSIENT ISCHAEMIC ATTACK [None]
  - PERIPHERAL COLDNESS [None]
  - ATRIAL FLUTTER [None]
  - AORTIC STENOSIS [None]
  - CHEST DISCOMFORT [None]
  - HYPERTENSION [None]
  - LABORATORY TEST ABNORMAL [None]
  - DECREASED APPETITE [None]
  - RASH [None]
  - COGNITIVE DISORDER [None]
  - MINI MENTAL STATUS EXAMINATION ABNORMAL [None]
  - VERTEBRAL FORAMINAL STENOSIS [None]
  - AORTIC ARTERIOSCLEROSIS [None]
  - ASTHENIA [None]
  - MYOPATHY [None]
  - CORONARY ARTERY DISEASE [None]
  - ARRHYTHMIA SUPRAVENTRICULAR [None]
  - SICK SINUS SYNDROME [None]
  - OROPHARYNGEAL PAIN [None]
  - MEMORY IMPAIRMENT [None]
  - GAIT DISTURBANCE [None]
  - SOMNOLENCE [None]
  - INTERVERTEBRAL DISC DEGENERATION [None]
  - PNEUMONIA ASPIRATION [None]
  - INCONTINENCE [None]
  - DEFORMITY THORAX [None]
  - MYOCARDIAL INFARCTION [None]
  - NEPHROLITHIASIS [None]
  - ORTHOSIS USER [None]
  - UPPER RESPIRATORY TRACT INFECTION [None]
  - GLUCOSE TOLERANCE IMPAIRED [None]
  - SUPRAVENTRICULAR TACHYCARDIA [None]
  - CLAVICLE FRACTURE [None]
  - DIASTOLIC DYSFUNCTION [None]
  - MYELOPATHY [None]
  - VOMITING [None]
  - DISEASE PROGRESSION [None]
  - PYREXIA [None]
  - DYSPNOEA [None]
  - BACK PAIN [None]
  - POLLAKIURIA [None]
  - MUSCLE DISORDER [None]
  - BIOPSY BRAIN ABNORMAL [None]
  - CEREBRAL AMYLOID ANGIOPATHY [None]
  - WHEELCHAIR USER [None]
  - TACHYCARDIA [None]
  - ATRIAL FIBRILLATION [None]
  - DEMENTIA ALZHEIMER'S TYPE [None]
  - CARDIAC FAILURE CONGESTIVE [None]
  - FRONTOTEMPORAL DEMENTIA [None]
  - HYPERLIPIDAEMIA [None]
  - ARTERIOSCLEROSIS [None]
  - SINUSITIS [None]
  - ATROPHY [None]
  - ELECTROCARDIOGRAM ABNORMAL [None]
  - BRADYCARDIA [None]
  - MUSCLE ATROPHY [None]
  - SPONDYLOLISTHESIS [None]
  - BIOPSY MUSCLE ABNORMAL [None]
  - DEATH [None]
  - DEMENTIA [None]
  - ABDOMINAL PAIN [None]
  - ANEURYSM [None]
  - CHEST PAIN [None]
  - PAIN IN EXTREMITY [None]
  - EPISTAXIS [None]
  - FATIGUE [None]
  - WOUND INFECTION [None]
  - CORRECTIVE LENS USER [None]
  - HYPOACUSIS [None]
  - CARDIAC PACEMAKER INSERTION [None]
  - RENAL CYST [None]
  - AUTOPSY [None]
  - CEREBRAL DISORDER [None]
